FAERS Safety Report 9463033 (Version 2)
Quarter: 2013Q4

REPORT INFORMATION
  Report Type: Spontaneous
  Country: GB (occurrence: GB)
  Receive Date: 20130816
  Receipt Date: 20131114
  Transmission Date: 20140711
  Serious: Yes (Disabling)
  Sender: FDA-Public Use
  Company Number: GB-ASTRAZENECA-2013SE62223

PATIENT
  Age: 30 Year
  Sex: Female
  Weight: 81 kg

DRUGS (9)
  1. QUETIAPINE [Suspect]
     Route: 048
  2. ARIPRPRAZOLE [Suspect]
     Route: 048
     Dates: end: 2008
  3. DEPIXOL [Suspect]
     Route: 051
     Dates: end: 2007
  4. CODEINE [Concomitant]
  5. DIAZEPAM [Concomitant]
  6. LOPERAMIDE [Concomitant]
  7. LORATADINE [Concomitant]
  8. PENTASA [Concomitant]
  9. ZOLPIDEM [Concomitant]

REACTIONS (41)
  - Activities of daily living impaired [Unknown]
  - Agitation [Not Recovered/Not Resolved]
  - Amnesia [Not Recovered/Not Resolved]
  - Anger [Not Recovered/Not Resolved]
  - Bradyphrenia [Not Recovered/Not Resolved]
  - Brain injury [Unknown]
  - Eye irritation [Not Recovered/Not Resolved]
  - Burning sensation [Not Recovered/Not Resolved]
  - Disturbance in attention [Not Recovered/Not Resolved]
  - Confusional state [Not Recovered/Not Resolved]
  - Coordination abnormal [Not Recovered/Not Resolved]
  - Crying [Not Recovered/Not Resolved]
  - Depression [Not Recovered/Not Resolved]
  - Visual acuity reduced [Not Recovered/Not Resolved]
  - Hyporeflexia [Not Recovered/Not Resolved]
  - Emotional disorder [Unknown]
  - Flashback [Unknown]
  - Head circumference abnormal [Not Recovered/Not Resolved]
  - Head discomfort [Not Recovered/Not Resolved]
  - Hot flush [Not Recovered/Not Resolved]
  - Profound mental retardation [Not Recovered/Not Resolved]
  - Impaired self-care [Not Recovered/Not Resolved]
  - Insomnia [Unknown]
  - Mental impairment [Unknown]
  - Tinnitus [Not Recovered/Not Resolved]
  - Obesity [Not Recovered/Not Resolved]
  - Pain [Unknown]
  - Paralysis [Unknown]
  - Anal abscess [Recovered/Resolved]
  - Mental retardation [Not Recovered/Not Resolved]
  - Screaming [Unknown]
  - Self esteem decreased [Not Recovered/Not Resolved]
  - Sense of oppression [Not Recovered/Not Resolved]
  - Sight disability [Not Recovered/Not Resolved]
  - Cerebrovascular accident [Not Recovered/Not Resolved]
  - Logorrhoea [Unknown]
  - Injury [Unknown]
  - Depressed mood [Not Recovered/Not Resolved]
  - Aphasia [Not Recovered/Not Resolved]
  - Nightmare [Not Recovered/Not Resolved]
  - Tremor [Not Recovered/Not Resolved]
